FAERS Safety Report 23584318 (Version 1)
Quarter: 2024Q1

REPORT INFORMATION
  Report Type: Other
  Country: US (occurrence: None)
  Receive Date: 20240301
  Receipt Date: 20240301
  Transmission Date: 20240410
  Serious: Yes (Death, Other)
  Sender: FDA-Public Use
  Company Number: US-ROCHE-3516168

PATIENT

DRUGS (5)
  1. RITUXIMAB [Suspect]
     Active Substance: RITUXIMAB
     Indication: Follicular lymphoma refractory
     Route: 042
  2. RITUXIMAB [Suspect]
     Active Substance: RITUXIMAB
     Indication: Diffuse large B-cell lymphoma refractory
  3. OBINUTUZUMAB [Suspect]
     Active Substance: OBINUTUZUMAB
     Indication: Follicular lymphoma refractory
     Route: 042
  4. PEMBROLIZUMAB [Suspect]
     Active Substance: PEMBROLIZUMAB
     Indication: Follicular lymphoma refractory
     Route: 042
  5. PEMBROLIZUMAB [Suspect]
     Active Substance: PEMBROLIZUMAB
     Indication: Diffuse large B-cell lymphoma refractory

REACTIONS (9)
  - Acute myeloid leukaemia [Fatal]
  - Acute kidney injury [Unknown]
  - Diarrhoea [Unknown]
  - Hypokalaemia [Unknown]
  - Arthralgia [Unknown]
  - Infusion related reaction [Unknown]
  - Back pain [Unknown]
  - Muscular weakness [Unknown]
  - Colitis [Unknown]
